FAERS Safety Report 9704641 (Version 2)
Quarter: 2014Q1

REPORT INFORMATION
  Report Type: Spontaneous
  Country: IT (occurrence: IT)
  Receive Date: 20131122
  Receipt Date: 20140124
  Transmission Date: 20141002
  Serious: Yes (Other)
  Sender: FDA-Public Use
  Company Number: IT-PFIZER INC-2013333383

PATIENT
  Age: 83 Year
  Sex: Male

DRUGS (2)
  1. AMIODARONE HCL [Suspect]
     Indication: ATRIAL FIBRILLATION
     Dosage: UNK
     Route: 048
     Dates: start: 2006, end: 201102
  2. DRONEDARONE [Suspect]
     Indication: ATRIAL FIBRILLATION
     Dosage: 400 MG, TWICE DAILY
     Route: 048
     Dates: start: 201102

REACTIONS (6)
  - Deposit eye [Unknown]
  - Corneal opacity [Unknown]
  - Visual acuity tests abnormal [Unknown]
  - Photosensitivity reaction [Recovered/Resolved]
  - Skin exfoliation [Recovered/Resolved]
  - Scab [Recovered/Resolved]
